FAERS Safety Report 17854606 (Version 12)
Quarter: 2023Q2

REPORT INFORMATION
  Report Type: Report from Study
  Country: GB (occurrence: GB)
  Receive Date: 20200603
  Receipt Date: 20230530
  Transmission Date: 20230721
  Serious: Yes (Hospitalization, Other)
  Sender: FDA-Public Use
  Company Number: NVSC2020GB140788

PATIENT
  Age: 9 Year
  Sex: Female
  Weight: 38 kg

DRUGS (17)
  1. TRAMETINIB [Suspect]
     Active Substance: TRAMETINIB
     Indication: Ganglioglioma
     Dosage: 1.25 MG, QD
     Route: 048
     Dates: start: 20200420
  2. TRAMETINIB [Suspect]
     Active Substance: TRAMETINIB
     Indication: BRAF V600E mutation positive
     Dosage: 1 MG, QD
     Route: 048
     Dates: start: 20200421, end: 20200505
  3. DABRAFENIB [Suspect]
     Active Substance: DABRAFENIB
     Indication: BRAF V600E mutation positive
     Dosage: 130 MG, BID
     Route: 048
     Dates: start: 20200421, end: 20200505
  4. DABRAFENIB [Suspect]
     Active Substance: DABRAFENIB
     Indication: Ganglioglioma
     Dosage: 100 MG, BID
     Dates: end: 20201231
  5. DABRAFENIB [Suspect]
     Active Substance: DABRAFENIB
     Dosage: 100 MG, BID
     Route: 065
     Dates: end: 20201231
  6. DABRAFENIB [Suspect]
     Active Substance: DABRAFENIB
     Dosage: 100 MG, BID
     Route: 065
     Dates: start: 20210107
  7. DABRAFENIB [Suspect]
     Active Substance: DABRAFENIB
     Dosage: 90 MG, BID
     Route: 065
     Dates: start: 20220216
  8. DABRAFENIB [Suspect]
     Active Substance: DABRAFENIB
     Dosage: 100 MG, BID
     Route: 065
     Dates: start: 20220322
  9. DABRAFENIB [Suspect]
     Active Substance: DABRAFENIB
     Dosage: 90 MG, BID
     Route: 065
  10. MAGNESIUM [Concomitant]
     Active Substance: MAGNESIUM
     Indication: Product used for unknown indication
     Dosage: UNK
     Route: 065
  11. KEPPRA [Concomitant]
     Active Substance: LEVETIRACETAM
     Indication: Product used for unknown indication
     Dosage: UNK
     Route: 065
  12. LANSOPRAZOLE [Concomitant]
     Active Substance: LANSOPRAZOLE
     Indication: Product used for unknown indication
     Dosage: UNK
     Route: 065
  13. ONDANSETRON [Concomitant]
     Active Substance: ONDANSETRON
     Indication: Product used for unknown indication
     Dosage: UNK
     Route: 065
  14. SPIRONOLACTONE [Concomitant]
     Active Substance: SPIRONOLACTONE
     Indication: Blood magnesium decreased
     Dosage: 20 MG, BID
     Route: 065
     Dates: start: 20201201, end: 20201231
  15. SPIRONOLACTONE [Concomitant]
     Active Substance: SPIRONOLACTONE
     Indication: Blood electrolytes decreased
  16. GLYCOPYRROLATE [Concomitant]
     Active Substance: GLYCOPYRROLATE
     Indication: Secretion discharge
     Dosage: 1 MG, BID
     Route: 065
     Dates: start: 20200101, end: 20201231
  17. LEVETIRACETAM [Concomitant]
     Active Substance: LEVETIRACETAM
     Indication: Seizure
     Dosage: 500 MG, QD
     Route: 065
     Dates: start: 20200101, end: 20201231

REACTIONS (21)
  - Pain [Recovered/Resolved]
  - Rash erythematous [Recovered/Resolved]
  - Rash [Recovered/Resolved]
  - Hypotension [Recovered/Resolved]
  - Pyrexia [Recovered/Resolved]
  - Alanine aminotransferase increased [Recovering/Resolving]
  - Abdominal pain upper [Recovering/Resolving]
  - Cardiac dysfunction [Recovering/Resolving]
  - Ejection fraction decreased [Unknown]
  - Ganglioglioma [Not Recovered/Not Resolved]
  - Syncope [Unknown]
  - Trigeminal nerve disorder [Unknown]
  - Malignant neoplasm progression [Not Recovered/Not Resolved]
  - Infection [Recovered/Resolved]
  - Aspiration [Unknown]
  - Urinary retention [Unknown]
  - Constipation [Unknown]
  - Lung consolidation [Unknown]
  - Weight fluctuation [Unknown]
  - Gamma-glutamyltransferase increased [Recovering/Resolving]
  - Aspartate aminotransferase increased [Recovering/Resolving]

NARRATIVE: CASE EVENT DATE: 20200505
